FAERS Safety Report 11796655 (Version 1)
Quarter: 2015Q4

REPORT INFORMATION
  Report Type: Spontaneous
  Country: US (occurrence: US)
  Receive Date: 20151203
  Receipt Date: 20151203
  Transmission Date: 20160305
  Serious: Yes (Other)
  Sender: FDA-Public Use
  Company Number: US-GLAXOSMITHKLINE-US2015GSK170027

PATIENT
  Age: 52 Year
  Sex: Female
  Weight: 106.6 kg

DRUGS (9)
  1. ZIAC [Concomitant]
     Active Substance: BISOPROLOL FUMARATE\HYDROCHLOROTHIAZIDE
  2. STRATTERA [Concomitant]
     Active Substance: ATOMOXETINE HYDROCHLORIDE
  3. BYDUREON [Concomitant]
     Active Substance: EXENATIDE
  4. GLUCOPHAGE [Concomitant]
     Active Substance: METFORMIN HYDROCHLORIDE
  5. ESTRADIOL. [Concomitant]
     Active Substance: ESTRADIOL
  6. CONTRAVE [Suspect]
     Active Substance: BUPROPION HYDROCHLORIDE\NALTREXONE HYDROCHLORIDE
     Indication: WEIGHT DECREASED
     Dosage: 2 DF, BID
     Route: 048
     Dates: start: 201504, end: 20151019
  7. DIOVAN [Concomitant]
     Active Substance: VALSARTAN
  8. WELLBUTRIN [Suspect]
     Active Substance: BUPROPION HYDROCHLORIDE
     Indication: PRODUCT USED FOR UNKNOWN INDICATION
     Dosage: UNK
     Dates: end: 2015
  9. PROGESTERONE. [Concomitant]
     Active Substance: PROGESTERONE

REACTIONS (10)
  - Rhinorrhoea [Unknown]
  - Contraindicated drug administered [Recovered/Resolved]
  - Seizure [Unknown]
  - Road traffic accident [Unknown]
  - Nasopharyngitis [Unknown]
  - Loss of consciousness [Unknown]
  - Muscle rigidity [Unknown]
  - Incontinence [Unknown]
  - Pruritus [Unknown]
  - Urticaria [Unknown]

NARRATIVE: CASE EVENT DATE: 201510
